FAERS Safety Report 22190943 (Version 1)
Quarter: 2023Q2

REPORT INFORMATION
  Report Type: Spontaneous
  Country: US (occurrence: None)
  Receive Date: 20230407
  Receipt Date: 20230407
  Transmission Date: 20230722
  Serious: Yes (Other)
  Sender: FDA-Public Use
  Company Number: None

PATIENT
  Age: 9 Year
  Sex: Female
  Weight: 38.3 kg

DRUGS (1)
  1. LORATADINE [Suspect]
     Active Substance: LORATADINE
     Indication: Seasonal allergy
     Dosage: FREQUENCY : DAILY;?
     Route: 048
     Dates: start: 20230330, end: 20230403

REACTIONS (5)
  - Seizure [None]
  - Fall [None]
  - Unresponsive to stimuli [None]
  - Urinary incontinence [None]
  - Altered state of consciousness [None]

NARRATIVE: CASE EVENT DATE: 20230403
